FAERS Safety Report 23237663 (Version 1)
Quarter: 2023Q4

REPORT INFORMATION
  Report Type: Spontaneous
  Country: US (occurrence: US)
  Receive Date: 20231128
  Receipt Date: 20231128
  Transmission Date: 20240110
  Serious: No
  Sender: FDA-Public Use
  Company Number: US-ABBVIE-5516308

PATIENT
  Sex: Female

DRUGS (1)
  1. HUMIRA [Suspect]
     Active Substance: ADALIMUMAB
     Indication: Rheumatoid arthritis
     Route: 058

REACTIONS (9)
  - Dizziness [Unknown]
  - Back pain [Unknown]
  - Headache [Unknown]
  - Chest pain [Unknown]
  - Blood pressure increased [Unknown]
  - Illness [Unknown]
  - Productive cough [Unknown]
  - Respiratory tract congestion [Unknown]
  - Dyspnoea [Unknown]

NARRATIVE: CASE EVENT DATE: 20231117
